FAERS Safety Report 11765447 (Version 1)
Quarter: 2015Q4

REPORT INFORMATION
  Report Type: Spontaneous
  Country: US (occurrence: US)
  Receive Date: 20151120
  Receipt Date: 20151120
  Transmission Date: 20160304
  Serious: No
  Sender: FDA-Public Use
  Company Number: US-ELI_LILLY_AND_COMPANY-US201404004837

PATIENT
  Age: 69 Year
  Sex: Female

DRUGS (13)
  1. LISINOPRIL. [Concomitant]
     Active Substance: LISINOPRIL
  2. FISH OIL [Concomitant]
     Active Substance: FISH OIL
  3. GLUCOSAMINE [Concomitant]
     Active Substance: GLUCOSAMINE
  4. ASPIRIN. [Concomitant]
     Active Substance: ASPIRIN
  5. FORTEO [Suspect]
     Active Substance: TERIPARATIDE
     Dosage: UNK, QD
     Route: 065
     Dates: end: 20140408
  6. CRANBERRY                          /01512301/ [Concomitant]
     Active Substance: CRANBERRY
  7. CALCIUM [Concomitant]
     Active Substance: CALCIUM
  8. FORTEO [Suspect]
     Active Substance: TERIPARATIDE
     Indication: OSTEOPOROSIS
     Dosage: UNK, QD
     Route: 065
     Dates: start: 20131002
  9. LEVOTHYROXIN [Concomitant]
     Active Substance: LEVOTHYROXINE
  10. D3 [Concomitant]
     Active Substance: 25-HYDROXYCHOLECALCIFEROL, 5-TRANS-
  11. PRESERVISION LUTEIN [Concomitant]
     Active Substance: MINERALS\VITAMINS
  12. PRAVASTATIN [Concomitant]
     Active Substance: PRAVASTATIN\PRAVASTATIN SODIUM
  13. VITAMIN E [Concomitant]
     Active Substance: .ALPHA.-TOCOPHEROL

REACTIONS (6)
  - Bone pain [Recovered/Resolved]
  - Myalgia [Recovered/Resolved]
  - Pain in extremity [Recovered/Resolved]
  - Nausea [Recovered/Resolved]
  - Back pain [Recovered/Resolved]
  - Arthralgia [Recovered/Resolved]

NARRATIVE: CASE EVENT DATE: 20131002
